FAERS Safety Report 17428873 (Version 1)
Quarter: 2020Q1

REPORT INFORMATION
  Report Type: Spontaneous
  Country: US (occurrence: US)
  Receive Date: 20200218
  Receipt Date: 20200218
  Transmission Date: 20200409
  Serious: Yes (Other)
  Sender: FDA-Public Use
  Company Number: US-TAKEDA-2020TUS009008

PATIENT
  Sex: Male
  Weight: 96 kg

DRUGS (2)
  1. VELCADE [Suspect]
     Active Substance: BORTEZOMIB
     Indication: RENAL CANCER
     Dosage: UNK
     Route: 058
     Dates: start: 20200207
  2. VELCADE [Suspect]
     Active Substance: BORTEZOMIB
     Indication: NEOPLASM MALIGNANT

REACTIONS (2)
  - General physical health deterioration [Unknown]
  - Off label use [Unknown]
